FAERS Safety Report 5323558-7 (Version None)
Quarter: 2007Q2

REPORT INFORMATION
  Report Type: 
  Country: None (occurrence: None)
  Receive Date: 20070514
  Receipt Date: 20070430
  Transmission Date: 20071010
  Serious: Yes (Other)
  Sender: FDA-Public Use
  Company Number: CA-ELI_LILLY_AND_COMPANY-CA200705002138

PATIENT
  Sex: Female

DRUGS (4)
  1. FORTEO [Suspect]
     Dosage: 20 UG, DAILY (1/D)
     Dates: start: 20070130
  2. ZOLOFT [Concomitant]
  3. ACETAMINOPHEN [Concomitant]
  4. GABAPENTIN [Concomitant]

REACTIONS (2)
  - BLOOD CALCIUM INCREASED [None]
  - MYOCARDIAL INFARCTION [None]
